FAERS Safety Report 15867822 (Version 1)
Quarter: 2019Q1

REPORT INFORMATION
  Report Type: Spontaneous
  Country: CN (occurrence: CN)
  Receive Date: 20190125
  Receipt Date: 20190125
  Transmission Date: 20190417
  Serious: Yes (Other)
  Sender: FDA-Public Use
  Company Number: CN-ASTRAZENECA-2019SE13401

PATIENT
  Age: 57 Year
  Sex: Male
  Weight: 64 kg

DRUGS (9)
  1. LOSARTAN AND HYDROCHLOROTHIAZIDE [Suspect]
     Active Substance: HYDROCHLOROTHIAZIDE\LOSARTAN POTASSIUM
     Route: 065
  2. OXIRACETAM [Concomitant]
     Active Substance: OXIRACETAM
     Route: 065
  3. ROSUVASTATIN CALCIUM. [Suspect]
     Active Substance: ROSUVASTATIN CALCIUM
     Route: 048
  4. ASPIRIN. [Suspect]
     Active Substance: ASPIRIN
     Route: 065
  5. ASPIRIN. [Suspect]
     Active Substance: ASPIRIN
     Route: 065
  6. ROSUVASTATIN CALCIUM. [Suspect]
     Active Substance: ROSUVASTATIN CALCIUM
     Dosage: 20 MG/DAY WAS CHANGED TO 10 MG/DAY
     Route: 048
     Dates: start: 20141101
  7. BUTYLPHTHALIDE [Suspect]
     Active Substance: BUTYLPHTHALIDE
     Route: 065
  8. PANTOPRAZOLE [Concomitant]
     Active Substance: PANTOPRAZOLE
     Route: 065
  9. ALPROSTADIL. [Concomitant]
     Active Substance: ALPROSTADIL
     Route: 065
     Dates: end: 20141101

REACTIONS (1)
  - Drug-induced liver injury [Recovered/Resolved]
